FAERS Safety Report 4720815-X (Version None)
Quarter: 2005Q3

REPORT INFORMATION
  Report Type: 
  Country: None (occurrence: None)
  Receive Date: 20050721
  Receipt Date: 20050622
  Transmission Date: 20060218
  Serious: Yes (Death, Other)
  Sender: FDA-Public Use
  Company Number: PHBS2005JP08947

PATIENT
  Age: 62 Year
  Sex: Male

DRUGS (9)
  1. TEGRETOL [Suspect]
     Indication: NEURALGIA
     Dosage: 100 MG, QD
     Route: 048
     Dates: start: 20020322, end: 20020508
  2. TEGRETOL [Suspect]
     Dosage: 50 MG, QD
     Route: 048
     Dates: start: 20020319, end: 20020321
  3. OMEPRAZOLE [Concomitant]
     Indication: GASTRIC ULCER
     Dosage: 20 MG/DAY
     Route: 048
     Dates: start: 20020306, end: 20020508
  4. UFT [Concomitant]
     Indication: HEPATIC NEOPLASM MALIGNANT
     Dosage: 2.25 G
     Route: 048
     Dates: start: 20020306, end: 20020508
  5. HARNAL [Concomitant]
     Indication: BENIGN PROSTATIC HYPERPLASIA
     Dosage: 0.2 MG/DAY
     Route: 048
     Dates: start: 20020328, end: 20020508
  6. LOXONIN [Concomitant]
     Indication: PAIN
     Dosage: 180 MG/DAY
     Route: 048
     Dates: start: 20020410, end: 20020508
  7. KADIAN [Concomitant]
     Indication: PAIN
     Dosage: 40 MG/DAY
     Route: 048
     Dates: start: 20020308, end: 20020508
  8. DUROTEP [Concomitant]
     Indication: PAIN
     Dosage: 2.5 MG
     Route: 062
     Dates: start: 20020411
  9. MEIACT [Concomitant]
     Indication: PYREXIA
     Dosage: 300 MG/DAY
     Route: 048
     Dates: start: 20020502, end: 20020507

REACTIONS (16)
  - COUGH [None]
  - DYSPNOEA [None]
  - LEUKOCYTOCLASTIC VASCULITIS [None]
  - LYMPHADENOPATHY [None]
  - OXYGEN SATURATION DECREASED [None]
  - PALPABLE PURPURA [None]
  - PHARYNGEAL ERYTHEMA [None]
  - PHARYNGOLARYNGEAL PAIN [None]
  - PLEURAL EFFUSION [None]
  - PRODUCTIVE COUGH [None]
  - PULMONARY OEDEMA [None]
  - SEPSIS [None]
  - SPINAL FUSION SURGERY [None]
  - STOMATITIS [None]
  - TONGUE DISORDER [None]
  - WOUND INFECTION [None]
